FAERS Safety Report 7065019-3 (Version None)
Quarter: 2010Q4

REPORT INFORMATION
  Report Type: 
  Country: None (occurrence: None)
  Receive Date: 20101027
  Receipt Date: 19940121
  Transmission Date: 20110411
  Serious: Yes (Death, Life-Threatening, Disabling)
  Sender: FDA-Public Use
  Company Number: US-ROCHE-940200161001

PATIENT
  Age: 78 Year
  Sex: Female

DRUGS (4)
  1. ROMAZICON [Suspect]
     Indication: REVERSAL OF SEDATION
     Route: 065
  2. VERSED [Suspect]
     Route: 065
  3. NARCAN [Concomitant]
     Route: 065
  4. UNCLASSIFIED DRUG [Concomitant]
     Route: 065

REACTIONS (2)
  - CONVULSION [None]
  - DEATH [None]
